FAERS Safety Report 24259041 (Version 1)
Quarter: 2024Q3

REPORT INFORMATION
  Report Type: Spontaneous
  Country: US (occurrence: None)
  Receive Date: 20240827
  Receipt Date: 20240827
  Transmission Date: 20241017
  Serious: Yes (Hospitalization)
  Sender: Public
  Company Number: None

PATIENT
  Age: 5 Year
  Sex: Male
  Weight: 22.51 kg

DRUGS (1)
  1. ASPARLAS [Suspect]
     Active Substance: CALASPARGASE PEGOL-MKNL
     Indication: Acute lymphocytic leukaemia
     Dosage: 2.9 ML EVERY 21 DAYS INTRAVENOUS
     Route: 042
     Dates: start: 20240730

REACTIONS (1)
  - Emergency care [None]

NARRATIVE: CASE EVENT DATE: 20240826
